FAERS Safety Report 11793244 (Version 3)
Quarter: 2016Q3

REPORT INFORMATION
  Report Type: Spontaneous
  Country: US (occurrence: US)
  Receive Date: 20151202
  Receipt Date: 20160919
  Transmission Date: 20161109
  Serious: No
  Sender: FDA-Public Use
  Company Number: US-PFIZER INC-2015398960

PATIENT
  Age: 63 Year
  Sex: Female

DRUGS (3)
  1. IBRANCE [Suspect]
     Active Substance: PALBOCICLIB
     Dosage: 75 UNK, UNK
     Dates: start: 201511
  2. IBRANCE [Suspect]
     Active Substance: PALBOCICLIB
     Dosage: 75 MG, UNK
     Dates: start: 20151109
  3. LETROZOLE. [Suspect]
     Active Substance: LETROZOLE
     Dosage: UNK

REACTIONS (7)
  - Nausea [Recovered/Resolved]
  - Arthralgia [Unknown]
  - Cough [Unknown]
  - Blood count abnormal [Unknown]
  - Dyspnoea [Unknown]
  - Sinusitis [Unknown]
  - Balance disorder [Unknown]
